FAERS Safety Report 21075317 (Version 5)
Quarter: 2023Q4

REPORT INFORMATION
  Report Type: Spontaneous
  Country: AU (occurrence: None)
  Receive Date: 20220713
  Receipt Date: 20231106
  Transmission Date: 20240110
  Serious: Yes (Other)
  Sender: FDA-Public Use
  Company Number: AU-PFIZER INC-PV202200019781

PATIENT
  Age: 15 Year
  Sex: Male
  Weight: 55 kg

DRUGS (7)
  1. METHOTREXATE [Suspect]
     Active Substance: METHOTREXATE
     Indication: Product used for unknown indication
  2. METHOTREXATE [Suspect]
     Active Substance: METHOTREXATE
     Dosage: WEEKLY THIS WEEK
  3. INFLECTRA [Suspect]
     Active Substance: INFLIXIMAB-DYYB
     Indication: Uveitis
  4. INFLECTRA [Suspect]
     Active Substance: INFLIXIMAB-DYYB
     Dates: start: 2022
  5. INFLECTRA [Suspect]
     Active Substance: INFLIXIMAB-DYYB
  6. FOLIC ACID [Concomitant]
     Active Substance: FOLIC ACID
  7. PREDNISOLONE [Concomitant]
     Active Substance: PREDNISOLONE
     Indication: Eye disorder

REACTIONS (3)
  - Macular degeneration [Unknown]
  - Blindness [Unknown]
  - Uveitis [Unknown]
